FAERS Safety Report 15587255 (Version 1)
Quarter: 2018Q4

REPORT INFORMATION
  Report Type: Spontaneous
  Country: BR (occurrence: BR)
  Receive Date: 20181105
  Receipt Date: 20181105
  Transmission Date: 20190205
  Serious: Yes (Death)
  Sender: FDA-Public Use
  Company Number: BR-PURDUE PHARMA-GBR-2018-0059590

PATIENT
  Age: 76 Year
  Sex: Female

DRUGS (2)
  1. RESTIVA [Concomitant]
     Active Substance: BUPRENORPHINE
     Dosage: 5 MG, UNK (STRENGTH 5 MG)
  2. OXYCONTIN [Suspect]
     Active Substance: OXYCODONE HYDROCHLORIDE
     Indication: PAIN
     Dosage: 2X/DAY OR WHEN FEELS PAIN(PRACTICALLY ONCE A DAY, BUT SOME DAYS SHE DIDN^T USE IT) (STRENGTH 10 MG)
     Route: 048

REACTIONS (2)
  - Death [Fatal]
  - Off label use [Unknown]

NARRATIVE: CASE EVENT DATE: 20180917
